FAERS Safety Report 6530493-5 (Version None)
Quarter: 2010Q1

REPORT INFORMATION
  Report Type: 
  Country: None (occurrence: None)
  Receive Date: 20100106
  Receipt Date: 20100106
  Transmission Date: 20100710
  Serious: Yes (Other)
  Sender: FDA-Public Use
  Company Number: None

PATIENT
  Sex: Female
  Weight: 67.1324 kg

DRUGS (1)
  1. MIRTAZAPINE [Suspect]
     Dosage: 45 MG ONCE QD PO
     Route: 048
     Dates: start: 20091230

REACTIONS (4)
  - ABNORMAL DREAMS [None]
  - ANXIETY [None]
  - FEAR [None]
  - PRODUCT SUBSTITUTION ISSUE [None]
